FAERS Safety Report 16821898 (Version 1)
Quarter: 2019Q3

REPORT INFORMATION
  Report Type: Spontaneous
  Country: IT (occurrence: IT)
  Receive Date: 20190918
  Receipt Date: 20190918
  Transmission Date: 20191005
  Serious: Yes (Life-Threatening)
  Sender: FDA-Public Use
  Company Number: IT-PFIZER INC-2019398244

PATIENT
  Age: 90 Year
  Sex: Female

DRUGS (1)
  1. TYGACIL [Suspect]
     Active Substance: TIGECYCLINE
     Indication: PNEUMONIA KLEBSIELLA
     Dosage: 100 MG, 1X/DAY
     Route: 042

REACTIONS (4)
  - Electrolyte imbalance [Recovering/Resolving]
  - Renal failure [Recovering/Resolving]
  - Product use issue [Unknown]
  - Off label use [Unknown]
